FAERS Safety Report 11705381 (Version 1)
Quarter: 2015Q4

REPORT INFORMATION
  Report Type: Spontaneous
  Country: US (occurrence: US)
  Receive Date: 20151106
  Receipt Date: 20151106
  Transmission Date: 20160304
  Serious: No
  Sender: FDA-Public Use
  Company Number: US-WARNER CHILCOTT, LLC-1043865

PATIENT
  Age: 71 Year
  Sex: Female

DRUGS (1)
  1. ENABLEX [Suspect]
     Active Substance: DARIFENACIN\DARIFENACIN HYDROBROMIDE
     Route: 048
     Dates: start: 201406

REACTIONS (5)
  - Drug ineffective [Unknown]
  - Hypertonic bladder [Unknown]
  - Pollakiuria [Unknown]
  - Urinary incontinence [Unknown]
  - Micturition urgency [Unknown]
